FAERS Safety Report 14242879 (Version 4)
Quarter: 2018Q2

REPORT INFORMATION
  Report Type: Spontaneous
  Country: GB (occurrence: GB)
  Receive Date: 20171201
  Receipt Date: 20180417
  Transmission Date: 20180711
  Serious: Yes (Life-Threatening, Disabling)
  Sender: FDA-Public Use
  Company Number: GB-JNJFOC-20171136264

PATIENT
  Age: 72 Year
  Sex: Female
  Weight: 73 kg

DRUGS (12)
  1. LYRICA [Interacting]
     Active Substance: PREGABALIN
     Indication: NEURALGIA
     Route: 048
     Dates: start: 20170501, end: 20170918
  2. LAXIDO [Concomitant]
     Active Substance: POLYETHYLENE GLYCOL 3350\POTASSIUM CHLORIDE\SODIUM BICARBONATE\SODIUM CHLORIDE
     Route: 065
  3. EXENATIDE. [Concomitant]
     Active Substance: EXENATIDE
     Route: 065
  4. FULTIUM [Concomitant]
     Active Substance: CHOLECALCIFEROL
     Route: 065
  5. TOLTERODINE TARTRATE. [Concomitant]
     Active Substance: TOLTERODINE TARTRATE
     Indication: ILL-DEFINED DISORDER
     Route: 065
  6. GLICLAZIDE [Concomitant]
     Active Substance: GLICLAZIDE
     Route: 065
  7. BYETTA [Concomitant]
     Active Substance: EXENATIDE
     Indication: BLOOD GLUCOSE INCREASED
     Route: 065
     Dates: end: 20170601
  8. LISINOPRIL. [Concomitant]
     Active Substance: LISINOPRIL
     Route: 065
  9. INVOKANA [Suspect]
     Active Substance: CANAGLIFLOZIN
     Indication: BLOOD GLUCOSE INCREASED
     Route: 048
     Dates: start: 20170617, end: 20170701
  10. INVOKANA [Suspect]
     Active Substance: CANAGLIFLOZIN
     Indication: BLOOD GLUCOSE INCREASED
     Route: 048
     Dates: start: 20170702, end: 20170804
  11. METFORMIN [Concomitant]
     Active Substance: METFORMIN HYDROCHLORIDE
     Route: 065
  12. NAPROSYN [Concomitant]
     Active Substance: NAPROXEN
     Route: 065

REACTIONS (13)
  - Ileus paralytic [Recovered/Resolved with Sequelae]
  - Discomfort [Unknown]
  - Abdominal pain [Recovered/Resolved with Sequelae]
  - Candida infection [Unknown]
  - Vomiting projectile [Recovered/Resolved]
  - Abdominal distension [Recovered/Resolved with Sequelae]
  - Drug interaction [Unknown]
  - Hypertonic bladder [Unknown]
  - Intestinal obstruction [Recovered/Resolved with Sequelae]
  - Back pain [Recovered/Resolved with Sequelae]
  - Off label use [Unknown]
  - Product use in unapproved indication [Unknown]
  - Constipation [Not Recovered/Not Resolved]

NARRATIVE: CASE EVENT DATE: 20170617
